FAERS Safety Report 15706427 (Version 1)
Quarter: 2018Q4

REPORT INFORMATION
  Report Type: Report from Study
  Country: US (occurrence: US)
  Receive Date: 20181210
  Receipt Date: 20181210
  Transmission Date: 20190205
  Serious: Yes (Hospitalization, Other)
  Sender: FDA-Public Use
  Company Number: US-SA-2017SA100804

PATIENT
  Age: 42 Year
  Sex: Female

DRUGS (1)
  1. ALEMTUZUMAB [Suspect]
     Active Substance: ALEMTUZUMAB
     Indication: MULTIPLE SCLEROSIS
     Dosage: 12 MG,QD
     Route: 041
     Dates: start: 20150720, end: 20150724

REACTIONS (16)
  - Epistaxis [Recovered/Resolved]
  - Menorrhagia [Recovered/Resolved]
  - Thrombocytopenia [Recovered/Resolved]
  - Haemorrhage [Recovered/Resolved]
  - Platelet count decreased [Recovered/Resolved]
  - Rash generalised [Recovered/Resolved]
  - Contusion [Recovered/Resolved]
  - Hypothyroidism [Recovered/Resolved]
  - Peripheral swelling [Recovered/Resolved]
  - CD4 lymphocytes decreased [Recovered/Resolved]
  - Muscle spasticity [Recovered/Resolved]
  - Hyperthyroidism [Recovered/Resolved]
  - Hyperhidrosis [Recovered/Resolved]
  - Insomnia [Recovered/Resolved]
  - Weight decreased [Recovered/Resolved]
  - Immune thrombocytopenic purpura [Unknown]

NARRATIVE: CASE EVENT DATE: 2015
